FAERS Safety Report 6992254-2 (Version None)
Quarter: 2010Q3

REPORT INFORMATION
  Report Type: 
  Country: None (occurrence: None)
  Receive Date: 20100917
  Receipt Date: 20100916
  Transmission Date: 20110219
  Serious: Yes (Hospitalization)
  Sender: FDA-Public Use
  Company Number: FR-SHIRE-CQT2-2009-00012

PATIENT

DRUGS (6)
  1. ANAGRELIDE HCL [Suspect]
     Indication: ESSENTIAL THROMBOCYTHAEMIA
     Dosage: 1 MG, 1X/DAY:QD
     Route: 048
     Dates: start: 20080626, end: 20090101
  2. ANAGRELIDE HCL [Suspect]
     Dosage: 1 MG, 1X/DAY:QD
     Route: 048
     Dates: start: 20090101, end: 20090225
  3. ANAGRELIDE HCL [Suspect]
     Dosage: 1.5 MG, 2X/DAY:BID
     Route: 048
     Dates: start: 20100226, end: 20100421
  4. ACETYLSALICYLIC ACID [Suspect]
     Indication: ESSENTIAL THROMBOCYTHAEMIA
     Dosage: 75 MG, 1X/DAY:QD
     Route: 048
     Dates: start: 20070401, end: 20090101
  5. ACETYLSALICYLIC ACID [Suspect]
     Dosage: 75 MG, 1X/DAY:QD
     Route: 048
     Dates: start: 20100101
  6. HYDROXYUREA [Suspect]
     Indication: ESSENTIAL THROMBOCYTHAEMIA
     Dosage: 1500 MG, 1X/DAY:QD
     Route: 048
     Dates: start: 20070523, end: 20080625

REACTIONS (1)
  - ANEURYSM RUPTURED [None]
